FAERS Safety Report 18423743 (Version 1)
Quarter: 2020Q4

REPORT INFORMATION
  Report Type: Spontaneous
  Country: BE (occurrence: BE)
  Receive Date: 20201024
  Receipt Date: 20201024
  Transmission Date: 20210114
  Serious: Yes (Other)
  Sender: FDA-Public Use
  Company Number: PHHY2019BE149748

PATIENT
  Age: 58 Year
  Sex: Female

DRUGS (9)
  1. HYDROXYCHLOROQUINE [Suspect]
     Active Substance: HYDROXYCHLOROQUINE
     Indication: SCHNITZLER^S SYNDROME
     Dosage: UNK
     Route: 065
  2. TOCILIZUMAB. [Concomitant]
     Active Substance: TOCILIZUMAB
     Indication: SCHNITZLER^S SYNDROME
     Dosage: ADMINISTERED AT THIS DOSE ALONGSIDE METHYLPREDNISOLONE AND COLCHICINE TO ACHIEVE COMPLETE REMISSION
     Route: 042
  3. DAPSONE. [Suspect]
     Active Substance: DAPSONE
     Indication: SCHNITZLER^S SYNDROME
     Dosage: UNK
     Route: 065
  4. PARACETAMOL [Concomitant]
     Active Substance: ACETAMINOPHEN
     Indication: SCHNITZLER^S SYNDROME
     Dosage: THRICE A DAY
     Route: 065
     Dates: start: 2015, end: 201912
  5. METHYLPREDNISOLONE. [Concomitant]
     Active Substance: METHYLPREDNISOLONE
     Indication: SCHNITZLER^S SYNDROME
     Dosage: ADMINISTERED AT THIS DOSE ALONGSIDE TOCILIZUMAB AND COLCHICINE TO ACHIEVE COMPLETE REMISSION
     Route: 065
  6. COLCHICINE. [Suspect]
     Active Substance: COLCHICINE
     Indication: SCHNITZLER^S SYNDROME
     Dosage: (0.5 X 1MG), 2 MILLIGRAM DAILY
     Route: 065
     Dates: start: 2013, end: 2019
  7. METHOTREXATE. [Suspect]
     Active Substance: METHOTREXATE
     Indication: SCHNITZLER^S SYNDROME
     Dosage: UNK
     Route: 065
  8. AZATHIOPRINE. [Suspect]
     Active Substance: AZATHIOPRINE
     Indication: SCHNITZLER^S SYNDROME
     Dosage: UNK
     Route: 065
  9. ANAKINRA [Suspect]
     Active Substance: ANAKINRA
     Indication: SCHNITZLER^S SYNDROME
     Dosage: 100 MG, DAILY
     Route: 058
     Dates: start: 202002

REACTIONS (6)
  - Inflammation [Recovered/Resolved]
  - Injection site reaction [Recovered/Resolved]
  - Injection site erythema [Recovered/Resolved]
  - Drug ineffective [Unknown]
  - Off label use [Unknown]
  - Product use in unapproved indication [Unknown]
